FAERS Safety Report 6037875-9 (Version None)
Quarter: 2009Q1

REPORT INFORMATION
  Report Type: 
  Country: None (occurrence: None)
  Receive Date: 20090115
  Receipt Date: 20090108
  Transmission Date: 20090719
  Serious: No
  Sender: FDA-Public Use
  Company Number: US-JNJFOC-20090101861

PATIENT
  Sex: Male
  Weight: 97.52 kg

DRUGS (4)
  1. DURAGESIC-100 [Suspect]
     Indication: CHRONIC INFLAMMATORY DEMYELINATING POLYRADICULONEUROPATHY
     Route: 062
     Dates: start: 20080101
  2. HYDROCODONE BITARTRATE [Concomitant]
     Dosage: 10/325/TABLET
     Route: 048
     Dates: start: 20070101
  3. NEURONTON [Concomitant]
     Indication: NEURALGIA
     Route: 048
     Dates: start: 20090101
  4. CYMBALTA [Concomitant]

REACTIONS (5)
  - APPLICATION SITE BURN [None]
  - DEPRESSION [None]
  - EUPHORIC MOOD [None]
  - INADEQUATE ANALGESIA [None]
  - INAPPROPRIATE SCHEDULE OF DRUG ADMINISTRATION [None]
